FAERS Safety Report 18312058 (Version 5)
Quarter: 2021Q1

REPORT INFORMATION
  Report Type: Report from Study
  Country: US (occurrence: US)
  Receive Date: 20200925
  Receipt Date: 20210224
  Transmission Date: 20210419
  Serious: Yes (Life-Threatening, Hospitalization)
  Sender: FDA-Public Use
  Company Number: US-TAKEDA-2020TUS039965

PATIENT
  Sex: Male

DRUGS (1)
  1. VEDOLIZUMAB [Suspect]
     Active Substance: VEDOLIZUMAB
     Indication: INFLAMMATORY BOWEL DISEASE
     Dosage: UNK
     Route: 042
     Dates: start: 20170912

REACTIONS (2)
  - Hepatic cirrhosis [Recovered/Resolved with Sequelae]
  - Cholangitis sclerosing [Recovered/Resolved with Sequelae]

NARRATIVE: CASE EVENT DATE: 20200810
